FAERS Safety Report 5463911-4 (Version None)
Quarter: 2007Q3

REPORT INFORMATION
  Report Type: 
  Country: None (occurrence: None)
  Receive Date: 20070919
  Receipt Date: 20070906
  Transmission Date: 20080115
  Serious: Yes (Hospitalization, Other)
  Sender: FDA-Public Use
  Company Number: 237586K07USA

PATIENT
  Age: 66 Year
  Sex: Female

DRUGS (2)
  1. REBIF [Suspect]
     Indication: MULTIPLE SCLEROSIS
     Dosage: 44 MCG, 3 IN 1 WEEKS, SUBCUTANEOUS
     Route: 058
     Dates: start: 20040310, end: 20070901
  2. REBIF [Suspect]
     Indication: MULTIPLE SCLEROSIS
     Dosage: 44 MCG, 3 IN 1 WEEKS, SUBCUTANEOUS
     Route: 058
     Dates: start: 20070901

REACTIONS (14)
  - ANURIA [None]
  - BODY HEIGHT DECREASED [None]
  - BONE DISORDER [None]
  - COMPRESSION FRACTURE [None]
  - DRUG DOSE OMISSION [None]
  - FIBROMYALGIA [None]
  - GASTROINTESTINAL OEDEMA [None]
  - INTERVERTEBRAL DISC PROTRUSION [None]
  - LOSS OF CONSCIOUSNESS [None]
  - PARALYSIS [None]
  - RENAL HYPERTROPHY [None]
  - RENAL TUBULAR DISORDER [None]
  - SPINAL FRACTURE [None]
  - SWELLING [None]
